FAERS Safety Report 6020693-5 (Version None)
Quarter: 2008Q4

REPORT INFORMATION
  Report Type: 
  Country: None (occurrence: None)
  Receive Date: 20081222
  Receipt Date: 20081209
  Transmission Date: 20090506
  Serious: Yes (Other)
  Sender: FDA-Public Use
  Company Number: JP-2008-1060

PATIENT
  Age: 61 Year
  Sex: Male

DRUGS (14)
  1. NAVELBINE [Suspect]
     Indication: LUNG ADENOCARCINOMA
     Dosage: 35 MG IV
     Route: 042
     Dates: start: 20081009, end: 20081009
  2. CISPLATIN [Suspect]
     Indication: LUNG ADENOCARCINOMA
     Dosage: 130 MG IV
     Route: 042
     Dates: start: 20081009, end: 20081009
  3. NASEA [Concomitant]
  4. DEXART [Concomitant]
  5. GASTER [Concomitant]
  6. MANNITOL [Concomitant]
  7. SPIRIVA [Concomitant]
  8. HYPEN [Concomitant]
  9. LOXONIN [Concomitant]
  10. CYTOTEC [Concomitant]
  11. ZANTAC [Concomitant]
  12. NORVASC [Suspect]
     Indication: HYPERTENSION
     Dosage: 5 MG QD PO
     Route: 048
  13. LASIX [Suspect]
     Indication: POLYURIA
     Route: 048
     Dates: start: 20081009, end: 20081012
  14. VOLTAREN [Suspect]
     Indication: CANCER PAIN
     Dosage: 37.5 MG BID
     Dates: start: 20080922

REACTIONS (9)
  - DAYDREAMING [None]
  - DISCOMFORT [None]
  - HYPERHIDROSIS [None]
  - HYPOTENSION [None]
  - MIDDLE INSOMNIA [None]
  - PALLOR [None]
  - PO2 DECREASED [None]
  - RESPIRATORY DISORDER [None]
  - SYNCOPE [None]
